FAERS Safety Report 17264223 (Version 1)
Quarter: 2020Q1

REPORT INFORMATION
  Report Type: Report from Study
  Country: IL (occurrence: IL)
  Receive Date: 20200113
  Receipt Date: 20200113
  Transmission Date: 20200409
  Serious: Yes (Death, Life-Threatening, Hospitalization, Other)
  Sender: FDA-Public Use
  Company Number: IL-ACTELION-A-NJ2020-200582

PATIENT
  Age: 88 Year
  Sex: Male

DRUGS (15)
  1. VENTAVIS [Suspect]
     Active Substance: ILOPROST
     Dosage: 2 DF, QD
     Route: 055
  2. SIMOVIL [Concomitant]
     Active Substance: SIMVASTATIN
  3. LOTAN [Concomitant]
  4. MICROPIRIN [Concomitant]
     Active Substance: ASPIRIN
  5. OMEPRADEX [Concomitant]
     Active Substance: OMEPRAZOLE
  6. BETACORTEN [Concomitant]
  7. FOLIC ACID. [Concomitant]
     Active Substance: FOLIC ACID
  8. LIQUIFILM [Concomitant]
  9. TRAMAL [Concomitant]
     Active Substance: TRAMADOL
  10. FUROSEMIDE. [Concomitant]
     Active Substance: FUROSEMIDE
  11. VENTAVIS [Suspect]
     Active Substance: ILOPROST
     Indication: PULMONARY HYPERTENSION
     Dosage: 6 DF, QD
     Route: 055
     Dates: start: 20150105
  12. HYDROXYETHYLCELLULOSE [Concomitant]
  13. TRACLEER [Concomitant]
     Active Substance: BOSENTAN
  14. CARDILOC [Concomitant]
     Active Substance: BISOPROLOL FUMARATE
  15. AGIOLAX [Concomitant]

REACTIONS (9)
  - Condition aggravated [Unknown]
  - Dyspnoea [Not Recovered/Not Resolved]
  - Inappropriate schedule of product administration [Unknown]
  - Asthenia [Not Recovered/Not Resolved]
  - General physical health deterioration [Not Recovered/Not Resolved]
  - Fall [Recovered/Resolved]
  - Dizziness [Unknown]
  - Apparent death [Unknown]
  - Death [Fatal]

NARRATIVE: CASE EVENT DATE: 2018
